FAERS Safety Report 6599827-X (Version None)
Quarter: 2010Q1

REPORT INFORMATION
  Report Type: 
  Country: None (occurrence: None)
  Receive Date: 20100224
  Receipt Date: 20100216
  Transmission Date: 20100710
  Serious: Yes (Other)
  Sender: FDA-Public Use
  Company Number: US-ELI_LILLY_AND_COMPANY-US201002004775

PATIENT
  Sex: Female

DRUGS (3)
  1. HUMULIN N [Suspect]
     Indication: DIABETES MELLITUS
     Dosage: 12 U, EACH MORNING
     Dates: start: 19940101
  2. HUMULIN N [Suspect]
     Dosage: 6 U, EACH EVENING
     Dates: start: 19940101
  3. HUMULIN R [Suspect]
     Indication: DIABETES MELLITUS
     Dosage: 6 U, UNK
     Dates: start: 19940101

REACTIONS (3)
  - BLINDNESS [None]
  - DIABETIC RETINOPATHY [None]
  - VISUAL IMPAIRMENT [None]
